FAERS Safety Report 4725950-8 (Version None)
Quarter: 2005Q3

REPORT INFORMATION
  Report Type: 
  Country: None (occurrence: None)
  Receive Date: 20050727
  Receipt Date: 20050725
  Transmission Date: 20060218
  Serious: Yes (Other)
  Sender: FDA-Public Use
  Company Number: US-GLAXOSMITHKLINE-A0567550A

PATIENT
  Age: 75 Year
  Sex: Female

DRUGS (9)
  1. ADVAIR DISKUS 100/50 [Suspect]
     Indication: CHRONIC OBSTRUCTIVE PULMONARY DISEASE
     Route: 055
  2. FLOVENT [Suspect]
     Indication: CHRONIC OBSTRUCTIVE PULMONARY DISEASE
     Dosage: 220MCG THREE TIMES PER DAY
     Route: 055
     Dates: start: 19960817
  3. SEREVENT [Suspect]
     Indication: CHRONIC OBSTRUCTIVE PULMONARY DISEASE
     Route: 055
  4. VERAPAMIL [Concomitant]
  5. TRIAMTEREN [Concomitant]
  6. GLUCOTROL [Concomitant]
  7. UNKNOWN EYE MEDICATION [Concomitant]
     Indication: GLAUCOMA
  8. OXYGEN THERAPY [Concomitant]
  9. LEVAQUIN [Concomitant]

REACTIONS (8)
  - BRONCHITIS [None]
  - CHEST DISCOMFORT [None]
  - COUGH [None]
  - DRUG INEFFECTIVE [None]
  - DYSPNOEA [None]
  - PLATELET COUNT INCREASED [None]
  - PULMONARY CONGESTION [None]
  - WHITE BLOOD CELL COUNT INCREASED [None]
